FAERS Safety Report 25961882 (Version 1)
Quarter: 2025Q4

REPORT INFORMATION
  Report Type: Spontaneous
  Country: US (occurrence: US)
  Receive Date: 20251027
  Receipt Date: 20251027
  Transmission Date: 20260117
  Serious: Yes (Other)
  Sender: MYLAN
  Company Number: US-MYLANLABS-2025M1089932

PATIENT
  Age: 60 Year
  Sex: Male

DRUGS (18)
  1. RIFAMPIN [Suspect]
     Active Substance: RIFAMPIN
     Indication: Mycobacterial infection
     Dosage: UNK
  2. RIFAMPIN [Suspect]
     Active Substance: RIFAMPIN
     Indication: Choroiditis
  3. AZITHROMYCIN [Suspect]
     Active Substance: AZITHROMYCIN
     Indication: Mycobacterial infection
     Dosage: UNK
  4. AZITHROMYCIN [Suspect]
     Active Substance: AZITHROMYCIN
     Indication: Choroiditis
  5. ETHAMBUTOL [Suspect]
     Active Substance: ETHAMBUTOL HYDROCHLORIDE
     Indication: Mycobacterial infection
     Dosage: UNK
  6. ETHAMBUTOL [Suspect]
     Active Substance: ETHAMBUTOL HYDROCHLORIDE
     Indication: Choroiditis
  7. CLOFAZIMINE [Suspect]
     Active Substance: CLOFAZIMINE
     Indication: Mycobacterial infection
     Dosage: UNK
  8. CLOFAZIMINE [Suspect]
     Active Substance: CLOFAZIMINE
     Indication: Choroiditis
  9. AMIKACIN [Suspect]
     Active Substance: AMIKACIN
     Indication: Mycobacterial infection
     Dosage: UNK
  10. AMIKACIN [Suspect]
     Active Substance: AMIKACIN
     Indication: Choroiditis
  11. AMIKACIN [Suspect]
     Active Substance: AMIKACIN
     Indication: Mycobacterial infection
     Dosage: UNK; IN RIGHT EYE
  12. AMIKACIN [Suspect]
     Active Substance: AMIKACIN
     Indication: Choroiditis
  13. LINEZOLID [Suspect]
     Active Substance: LINEZOLID
     Indication: Mycobacterial infection
     Dosage: UNK
  14. LINEZOLID [Suspect]
     Active Substance: LINEZOLID
     Indication: Choroiditis
  15. PREDNISOLONE [Suspect]
     Active Substance: PREDNISOLONE
     Indication: Mycobacterial infection
     Dosage: UNK, BID, IN THE RIGHT EYE
  16. PREDNISOLONE [Suspect]
     Active Substance: PREDNISOLONE
     Indication: Choroiditis
  17. DEXAMETHASONE [Concomitant]
     Active Substance: DEXAMETHASONE
     Indication: Mycobacterial infection
     Dosage: UNK
  18. DEXAMETHASONE [Concomitant]
     Active Substance: DEXAMETHASONE
     Indication: Choroiditis

REACTIONS (1)
  - Drug ineffective [Unknown]
